FAERS Safety Report 5864432-7 (Version None)
Quarter: 2008Q3

REPORT INFORMATION
  Report Type: 
  Country: None (occurrence: None)
  Receive Date: 20080829
  Receipt Date: 20080819
  Transmission Date: 20090109
  Serious: Yes (Hospitalization)
  Sender: FDA-Public Use
  Company Number: TH-JNJFOC-20080803971

PATIENT
  Age: 26 Year
  Sex: Male

DRUGS (3)
  1. RISPERDAL CONSTA [Suspect]
     Indication: DRUG USE FOR UNKNOWN INDICATION
     Dosage: 25MG 2 VIALS (TOTAL 50MG).
     Route: 030
  2. TOPAMAX [Suspect]
     Indication: DRUG USE FOR UNKNOWN INDICATION
     Dosage: 1 TABLET IN THE MORNING AND EVENING.
     Route: 065
  3. RIVOTRIL [Concomitant]
     Dosage: 1 TAABLET AT BEDTIME.
     Route: 065

REACTIONS (5)
  - BLOOD PRESSURE DECREASED [None]
  - DYSPNOEA [None]
  - EYE SWELLING [None]
  - HEART RATE DECREASED [None]
  - RASH [None]
